APPROVED DRUG PRODUCT: TECHNETIUM TC-99M SULFUR COLLOID KIT
Active Ingredient: TECHNETIUM TC-99M SULFUR COLLOID KIT
Strength: N/A
Dosage Form/Route: SOLUTION;INJECTION, ORAL
Application: A213516 | Product #001 | TE Code: AP
Applicant: JUBILANT DRAXIMAGE INC DBA JUBILANT RADIOPHARMA
Approved: Nov 9, 2023 | RLD: No | RS: No | Type: RX